FAERS Safety Report 10697208 (Version 2)
Quarter: 2015Q1

REPORT INFORMATION
  Report Type: Spontaneous
  Country: CA (occurrence: CA)
  Receive Date: 20150108
  Receipt Date: 20150120
  Transmission Date: 20150721
  Serious: Yes (Life-Threatening, Hospitalization, Other)
  Sender: FDA-Public Use
  Company Number: CHPA2014CA017270

PATIENT
  Age: 55 Year
  Sex: Female

DRUGS (4)
  1. VOLTAREN EMULGEL JOINT PAIN [Suspect]
     Active Substance: DICLOFENAC DIETHYLAMINE
     Indication: ARTHRITIS
     Dosage: UNK, PRN
     Route: 061
     Dates: start: 2011
  2. VOLTAREN EMULGEL EXTRA STRENGHT [Suspect]
     Active Substance: DICLOFENAC DIETHYLAMINE
     Indication: ARTHRITIS
     Dosage: 2 G, ONCE/SINGLE
     Route: 061
     Dates: start: 20141223, end: 20141223
  3. VOLTAREN [Suspect]
     Active Substance: DICLOFENAC SODIUM
     Indication: ARTHRITIS
     Dosage: UNK, PRN
     Route: 061
  4. HEPARIN [Suspect]
     Active Substance: HEPARIN SODIUM
     Indication: KNEE ARTHROPLASTY
     Dosage: UNK UNK, QD FOR 10 DAYS
     Route: 065
     Dates: start: 201306, end: 201307

REACTIONS (14)
  - Therapeutic response unexpected [Unknown]
  - Expired product administered [Unknown]
  - Ligament rupture [Recovered/Resolved]
  - Asthma [Not Recovered/Not Resolved]
  - Fall [Recovered/Resolved]
  - Myocardial strain [Recovered/Resolved]
  - Chest pain [Unknown]
  - Dyspnoea [Recovered/Resolved]
  - Off label use [None]
  - Thrombosis [Recovered/Resolved]
  - Condition aggravated [Recovered/Resolved]
  - Product use issue [Unknown]
  - Heart rate irregular [Unknown]
  - Chest discomfort [Unknown]

NARRATIVE: CASE EVENT DATE: 2011
